FAERS Safety Report 11536492 (Version 2)
Quarter: 2015Q4

REPORT INFORMATION
  Report Type: Spontaneous
  Country: US (occurrence: US)
  Receive Date: 20150922
  Receipt Date: 20151019
  Transmission Date: 20160304
  Serious: No
  Sender: FDA-Public Use
  Company Number: US-SHIRE-US201511532

PATIENT
  Age: 53 Year
  Sex: Female
  Weight: 48.98 kg

DRUGS (2)
  1. LIALDA [Suspect]
     Active Substance: MESALAMINE
     Indication: CROHN^S DISEASE
     Dosage: 4.8 G (FOUR 1.2 G), UNKNOWN (A DAY)
     Route: 048
     Dates: start: 201410
  2. HUMIRA [Concomitant]
     Active Substance: ADALIMUMAB
     Indication: CROHN^S DISEASE
     Dosage: 40 MG, OTHER (EVERY OTHER WEEK)
     Route: 058

REACTIONS (6)
  - Malaise [Not Recovered/Not Resolved]
  - Disturbance in attention [Not Recovered/Not Resolved]
  - Sinusitis [Not Recovered/Not Resolved]
  - Adverse event [Not Recovered/Not Resolved]
  - Incorrect product storage [Recovered/Resolved]
  - Product use issue [Not Recovered/Not Resolved]

NARRATIVE: CASE EVENT DATE: 201410
